FAERS Safety Report 20652683 (Version 1)
Quarter: 2022Q1

REPORT INFORMATION
  Report Type: Spontaneous
  Country: US (occurrence: None)
  Receive Date: 20220330
  Receipt Date: 20220330
  Transmission Date: 20220423
  Serious: No
  Sender: FDA-Public Use
  Company Number: 2022A106885

PATIENT

DRUGS (1)
  1. PULMICORT FLEXHALER [Suspect]
     Active Substance: BUDESONIDE
     Route: 055

REACTIONS (9)
  - Cough [Unknown]
  - Dysphonia [Unknown]
  - Lip swelling [Unknown]
  - Chest discomfort [Unknown]
  - Dyspnoea [Unknown]
  - Malaise [Unknown]
  - Intentional device misuse [Unknown]
  - Device use issue [Unknown]
  - Device malfunction [Unknown]
